FAERS Safety Report 14485706 (Version 1)
Quarter: 2018Q1

REPORT INFORMATION
  Report Type: Spontaneous
  Country: US (occurrence: US)
  Receive Date: 20180203
  Receipt Date: 20180203
  Transmission Date: 20180509
  Serious: Yes (Death)
  Sender: FDA-Public Use
  Company Number: None

PATIENT
  Age: 50 Year
  Sex: Female

DRUGS (3)
  1. IBRANCE [Suspect]
     Active Substance: PALBOCICLIB
     Indication: BREAST CANCER FEMALE
     Route: 048
     Dates: start: 20171223, end: 20180121
  2. ANASTROZOLE. [Concomitant]
     Active Substance: ANASTROZOLE
  3. CLONIDINE. [Concomitant]
     Active Substance: CLONIDINE

REACTIONS (1)
  - Death [None]

NARRATIVE: CASE EVENT DATE: 20180121
